FAERS Safety Report 15274240 (Version 1)
Quarter: 2018Q3

REPORT INFORMATION
  Report Type: Spontaneous
  Country: US (occurrence: US)
  Receive Date: 20180814
  Receipt Date: 20180814
  Transmission Date: 20181010
  Serious: No
  Sender: FDA-Public Use
  Company Number: US-AUROBINDO-AUR-APU-2018-032401

PATIENT
  Age: 85 Year
  Sex: Female
  Weight: 62.59 kg

DRUGS (1)
  1. LEVOFLOXACIN. [Suspect]
     Active Substance: LEVOFLOXACIN
     Indication: RENAL DISORDER
     Dosage: 1 DOSAGE FORM, ONE TABLET PER DAY
     Route: 065

REACTIONS (1)
  - Alopecia [Not Recovered/Not Resolved]
